FAERS Safety Report 23285605 (Version 1)
Quarter: 2023Q4

REPORT INFORMATION
  Report Type: Spontaneous
  Country: US (occurrence: None)
  Receive Date: 20231211
  Receipt Date: 20231211
  Transmission Date: 20240110
  Serious: Yes (Hospitalization)
  Sender: FDA-Public Use
  Company Number: None

PATIENT
  Age: 36 Year
  Sex: Female

DRUGS (3)
  1. HUMIRA [Suspect]
     Active Substance: ADALIMUMAB
     Dosage: OTHER FREQUENCY : DAY 1;?
  2. HUMIRA [Suspect]
     Active Substance: ADALIMUMAB
  3. REMICADE [Suspect]
     Active Substance: INFLIXIMAB

REACTIONS (2)
  - Stevens-Johnson syndrome [None]
  - Surgery [None]

NARRATIVE: CASE EVENT DATE: 20130501
